FAERS Safety Report 8472786-0 (Version None)
Quarter: 2012Q2

REPORT INFORMATION
  Report Type: 
  Country: None (occurrence: None)
  Receive Date: 20120622
  Receipt Date: 20120622
  Transmission Date: 20120825
  Serious: Yes (Death, Other)
  Sender: FDA-Public Use
  Company Number: None

PATIENT
  Age: 54 Year
  Sex: Female
  Weight: 68.0396 kg

DRUGS (2)
  1. PREMPHASE 14/14 [Suspect]
  2. PREMPRO [Suspect]

REACTIONS (4)
  - ABNORMAL BEHAVIOUR [None]
  - SWELLING FACE [None]
  - DRUG DISPENSING ERROR [None]
  - INCOHERENT [None]
